FAERS Safety Report 12622741 (Version 1)
Quarter: 2016Q3

REPORT INFORMATION
  Report Type: Spontaneous
  Country: US (occurrence: US)
  Receive Date: 20160804
  Receipt Date: 20160804
  Transmission Date: 20161109
  Serious: Yes (Other)
  Sender: FDA-Public Use
  Company Number: US-JNJFOC-20160724980

PATIENT
  Age: 69 Year
  Sex: Female
  Weight: 108.86 kg

DRUGS (10)
  1. LEVAQUIN [Suspect]
     Active Substance: LEVOFLOXACIN
     Indication: BRONCHITIS
     Route: 065
     Dates: start: 20080425, end: 20080501
  2. ADVIL [Concomitant]
     Active Substance: IBUPROFEN
     Indication: SWELLING
     Route: 065
     Dates: start: 2001
  3. LEVAQUIN [Suspect]
     Active Substance: LEVOFLOXACIN
     Indication: BRONCHITIS
     Route: 065
     Dates: start: 20070404, end: 20070408
  4. LEVAQUIN [Suspect]
     Active Substance: LEVOFLOXACIN
     Indication: BLADDER DISORDER
     Route: 065
     Dates: start: 20080929, end: 20081012
  5. LEVAQUIN [Suspect]
     Active Substance: LEVOFLOXACIN
     Indication: BRONCHITIS
     Route: 065
     Dates: start: 20080929, end: 20081012
  6. LEVAQUIN [Suspect]
     Active Substance: LEVOFLOXACIN
     Indication: BLADDER DISORDER
     Route: 065
  7. LEVAQUIN [Suspect]
     Active Substance: LEVOFLOXACIN
     Indication: BLADDER DISORDER
     Route: 065
     Dates: start: 20070404, end: 20070408
  8. CITALOPRAM [Concomitant]
     Active Substance: CITALOPRAM HYDROBROMIDE
     Indication: ANXIETY
     Route: 065
     Dates: start: 2006
  9. LEVAQUIN [Suspect]
     Active Substance: LEVOFLOXACIN
     Indication: BLADDER DISORDER
     Route: 065
     Dates: start: 20080425, end: 20080501
  10. LEVAQUIN [Suspect]
     Active Substance: LEVOFLOXACIN
     Indication: BRONCHITIS
     Route: 065

REACTIONS (5)
  - Tremor [Not Recovered/Not Resolved]
  - Arthralgia [Not Recovered/Not Resolved]
  - Neuropathy peripheral [Not Recovered/Not Resolved]
  - Cardiac failure congestive [Not Recovered/Not Resolved]
  - Restless legs syndrome [Not Recovered/Not Resolved]

NARRATIVE: CASE EVENT DATE: 200810
